FAERS Safety Report 4781785-1 (Version None)
Quarter: 2005Q3

REPORT INFORMATION
  Report Type: 
  Country: None (occurrence: None)
  Receive Date: 20050927
  Receipt Date: 20050916
  Transmission Date: 20060218
  Serious: Yes (Death)
  Sender: FDA-Public Use
  Company Number: MK200509-0207-1

PATIENT
  Sex: Female

DRUGS (2)
  1. METHADOSE [Suspect]
     Indication: OVERDOSE
  2. XANAX [Suspect]
     Indication: OVERDOSE

REACTIONS (2)
  - OVERDOSE [None]
  - VICTIM OF HOMICIDE [None]
